FAERS Safety Report 8827952 (Version 1)
Quarter: 2012Q4

REPORT INFORMATION
  Report Type: 
  Country: CO (occurrence: CO)
  Receive Date: 20121005
  Receipt Date: 20121005
  Transmission Date: 20130627
  Serious: Yes (Other)
  Sender: FDA-Public Use
  Company Number: CO-MPIJNJ-2012-06818

PATIENT

DRUGS (3)
  1. VELCADE [Suspect]
     Indication: MULTIPLE MYELOMA
     Dosage: 2 mg, Cyclic
     Route: 065
     Dates: start: 20120329, end: 20120920
  2. DOXORUBICIN [Concomitant]
  3. DEXAMETHASONE [Concomitant]

REACTIONS (3)
  - Blood electrolytes decreased [Unknown]
  - Hypokalaemia [Unknown]
  - Diarrhoea [Unknown]
